FAERS Safety Report 7171026-2 (Version None)
Quarter: 2010Q4

REPORT INFORMATION
  Report Type: 
  Country: None (occurrence: None)
  Receive Date: 20101217
  Receipt Date: 20101208
  Transmission Date: 20110411
  Serious: Yes (Hospitalization)
  Sender: FDA-Public Use
  Company Number: BR-ASTRAZENECA-2010SE51881

PATIENT
  Age: 55 Year
  Sex: Female
  Weight: 80 kg

DRUGS (8)
  1. ATACAND [Suspect]
     Indication: HYPERTENSION
     Route: 048
     Dates: start: 20080101, end: 20100501
  2. SELOZOK [Suspect]
     Indication: HYPERTENSION
     Route: 048
  3. ASPIRIN [Concomitant]
     Indication: ANTICOAGULANT THERAPY
     Route: 048
     Dates: start: 20080101
  4. CAPTOPRIL [Concomitant]
     Indication: HYPERTENSION
     Route: 048
     Dates: start: 20080101
  5. APRESSOLINA [Concomitant]
     Indication: HYPERTENSION
     Route: 048
     Dates: start: 20080101
  6. AMLO [Concomitant]
     Indication: HYPERTENSION
     Route: 048
     Dates: start: 20080101
  7. ALDOMET [Concomitant]
     Indication: HYPERTENSION
     Route: 048
     Dates: start: 20080101
  8. METFORMIN [Concomitant]
     Indication: DIABETES MELLITUS
     Route: 048

REACTIONS (5)
  - FALL [None]
  - MEMORY IMPAIRMENT [None]
  - MYOCARDIAL INFARCTION [None]
  - SYNCOPE [None]
  - VOMITING [None]
